FAERS Safety Report 8611159-4 (Version None)
Quarter: 2012Q3

REPORT INFORMATION
  Report Type: 
  Country: None (occurrence: None)
  Receive Date: 20120803
  Receipt Date: 20120716
  Transmission Date: 20120928
  Serious: Yes (Hospitalization)
  Sender: FDA-Public Use
  Company Number: HAPL-011-12-GB

PATIENT
  Age: 13 Year
  Sex: Female

DRUGS (19)
  1. TAURINE [Concomitant]
  2. TARGOCID [Suspect]
     Indication: HYPOGAMMAGLOBULINAEMIA
     Dosage: 400 MG (1X 1 / D)
     Route: 042
     Dates: start: 20120528, end: 20120611
  3. TARGOCID [Suspect]
     Indication: STAPHYLOCOCCAL INFECTION
     Dosage: 400 MG (1X 1 / D)
     Route: 042
     Dates: start: 20120528, end: 20120611
  4. CEFTAZIDIME [Suspect]
     Indication: STAPHYLOCOCCAL INFECTION
     Dosage: 4.5 G (2X 1/D)
     Route: 042
     Dates: start: 20120530
  5. AZITHROMYCIN [Concomitant]
  6. ACETAMINOPHEN [Concomitant]
  7. COLECALCIFEROL [Concomitant]
  8. VITAMIN E [Concomitant]
  9. DORNASE ALFA [Concomitant]
  10. FLUTICASONE AND SALMETEROL [Concomitant]
  11. PANCRELIPASE [Concomitant]
  12. ALBUTEROL SULATE [Concomitant]
  13. THEOPHYLLINE [Concomitant]
  14. TOBRAMYCIN [Suspect]
     Indication: STAPHYLOCOCCAL INFECTION
     Dosage: 450 MG (1X 1/D)
     Route: 042
     Dates: start: 20120528, end: 20120608
  15. OMEPRAZOLE [Concomitant]
  16. VITAMIN D [Concomitant]
  17. PHYTONADIONE [Concomitant]
  18. URSODIOL [Concomitant]
  19. VITAMIN A [Concomitant]

REACTIONS (8)
  - RENAL IMPAIRMENT [None]
  - PYREXIA [None]
  - MALAISE [None]
  - ABNORMAL BEHAVIOUR [None]
  - DISSEMINATED INTRAVASCULAR COAGULATION [None]
  - APHAGIA [None]
  - SERUM SICKNESS [None]
  - FEELING ABNORMAL [None]
